FAERS Safety Report 7413523-8 (Version None)
Quarter: 2011Q2

REPORT INFORMATION
  Report Type: 
  Country: None (occurrence: None)
  Receive Date: 20110405
  Receipt Date: 20110330
  Transmission Date: 20111010
  Serious: Yes (Life-Threatening, Hospitalization)
  Sender: FDA-Public Use
  Company Number: 2010SP061885

PATIENT
  Age: 67 Year
  Sex: Female

DRUGS (10)
  1. TEMOZOLOMIDE [Suspect]
     Indication: OVARIAN CANCER
     Dosage: 150 MG/M2, PO
     Route: 048
     Dates: start: 20101012, end: 20101016
  2. CARBOPLATIN [Concomitant]
  3. TAXOL [Concomitant]
  4. LEVOTHYROXINE SODIUM [Concomitant]
  5. DOCUSATE [Concomitant]
  6. CANDESARTAN CILEXETIL [Concomitant]
  7. PYRIDOXINE HYDROCHLORIDE [Concomitant]
  8. PEGYLATED LIPOSOMAL DOXORUBICIN HCL [Suspect]
     Indication: OVARIAN CANCER
     Dosage: 90, 72 MG, IV
     Route: 042
     Dates: start: 20100831, end: 20100831
  9. PEGYLATED LIPOSOMAL DOXORUBICIN HCL [Suspect]
     Indication: OVARIAN CANCER
     Dosage: 90, 72 MG, IV
     Route: 042
     Dates: start: 20100803, end: 20100803
  10. ABT-888 [Suspect]
     Indication: OVARIAN CANCER
     Dosage: 40 MG, PO
     Route: 048
     Dates: start: 20101012, end: 20101018

REACTIONS (10)
  - NEOPLASM MALIGNANT [None]
  - RECTAL HAEMORRHAGE [None]
  - ENTEROCOCCUS TEST POSITIVE [None]
  - BONE MARROW FAILURE [None]
  - INFECTION SUSCEPTIBILITY INCREASED [None]
  - OVARIAN CANCER METASTATIC [None]
  - FEBRILE NEUTROPENIA [None]
  - HYPOTENSION [None]
  - BACTERAEMIA [None]
  - URINARY TRACT INFECTION [None]
